FAERS Safety Report 12866056 (Version 2)
Quarter: 2016Q4

REPORT INFORMATION
  Report Type: Spontaneous
  Country: DE (occurrence: DE)
  Receive Date: 20161020
  Receipt Date: 20161204
  Transmission Date: 20170207
  Serious: Yes (Other)
  Sender: FDA-Public Use
  Company Number: DE-GLAXOSMITHKLINE-DE2016GSK141461

PATIENT
  Sex: Female
  Weight: 95 kg

DRUGS (6)
  1. SALBUTAMOL [Concomitant]
     Active Substance: ALBUTEROL
     Indication: ASTHMA
     Dosage: UNK
     Route: 055
  2. ATORVASTATIN [Concomitant]
     Active Substance: ATORVASTATIN
     Route: 048
  3. EUTHYROX [Concomitant]
     Active Substance: LEVOTHYROXINE SODIUM
     Dosage: 112 UG, U
     Route: 048
  4. EXFORGE [Concomitant]
     Active Substance: AMLODIPINE BESYLATE\VALSARTAN
     Route: 048
  5. VIANI [Suspect]
     Active Substance: FLUTICASONE PROPIONATE\SALMETEROL XINAFOATE
     Indication: ASTHMA
     Dosage: UNK
     Route: 055
  6. ATMADISC [Concomitant]
     Active Substance: FLUTICASONE PROPIONATE\SALMETEROL XINAFOATE
     Indication: ASTHMA
     Dosage: UNK
     Route: 055

REACTIONS (5)
  - Chest discomfort [Recovered/Resolved]
  - Asthmatic crisis [Recovered/Resolved]
  - Drug ineffective [Unknown]
  - Respiratory distress [Recovered/Resolved]
  - Asthma [Recovered/Resolved]
